FAERS Safety Report 5308883-8 (Version None)
Quarter: 2007Q2

REPORT INFORMATION
  Report Type: 
  Country: None (occurrence: None)
  Receive Date: 20070426
  Receipt Date: 20070417
  Transmission Date: 20071010
  Serious: Yes (Other)
  Sender: FDA-Public Use
  Company Number: BR-PFIZER INC-2007031662

PATIENT
  Sex: Male

DRUGS (4)
  1. FRONTAL [Suspect]
     Indication: ANXIETY DISORDER
     Dosage: TEXT:UNKNOWN
     Route: 048
  2. FLUOXETINE [Concomitant]
  3. PAROXETINE [Concomitant]
  4. ANTIEPILEPTICS [Concomitant]

REACTIONS (3)
  - HYPERTENSION [None]
  - PHOBIA [None]
  - VARICES OESOPHAGEAL [None]
